FAERS Safety Report 4396947-5 (Version None)
Quarter: 2004Q3

REPORT INFORMATION
  Report Type: 
  Country: None (occurrence: None)
  Receive Date: 20040708
  Receipt Date: 20040625
  Transmission Date: 20050211
  Serious: Yes (Hospitalization)
  Sender: FDA-Public Use
  Company Number: CH-JNJFOC-20040607218

PATIENT
  Sex: Male

DRUGS (4)
  1. REMICADE [Suspect]
     Indication: PSORIASIS
     Dosage: 550 MG, INTRAVENOUS
     Route: 042
     Dates: start: 20040611
  2. ACETAMINOPHEN [Suspect]
     Indication: PYREXIA
     Dosage: 1 G, INTRAVENOUS
     Route: 042
     Dates: start: 20040611
  3. ISONIAZID [Concomitant]
  4. IBUPROFEN [Concomitant]

REACTIONS (6)
  - CONDITION AGGRAVATED [None]
  - DERMATITIS EXFOLIATIVE [None]
  - DRUG INTERACTION [None]
  - EOSINOPHIL COUNT INCREASED [None]
  - GOUT [None]
  - INFLAMMATION [None]
